FAERS Safety Report 21453073 (Version 1)
Quarter: 2022Q4

REPORT INFORMATION
  Report Type: Other
  Country: IR (occurrence: IR)
  Receive Date: 20221013
  Receipt Date: 20221013
  Transmission Date: 20230113
  Serious: Yes (Death, Life-Threatening, Hospitalization)
  Sender: FDA-Public Use
  Company Number: IR-BoehringerIngelheim-2022-BI-196489

PATIENT
  Age: 65 Year
  Sex: Female
  Weight: 70 kg

DRUGS (7)
  1. ALTEPLASE [Suspect]
     Active Substance: ALTEPLASE
     Indication: COVID-19
     Dosage: 50 ML OF THE SOLVENT (1 MG/ML SOLUTION) AND NEBULIZED BY JET NEBULIZER IN DIVIDED VOLUMES OVER 2 HOU
     Route: 055
  2. ALTEPLASE [Suspect]
     Active Substance: ALTEPLASE
     Indication: Acute respiratory distress syndrome
  3. HYDROXYCHLOROQUINE [Concomitant]
     Active Substance: HYDROXYCHLOROQUINE
     Indication: Product used for unknown indication
     Route: 048
  4. HYDROXYCHLOROQUINE [Concomitant]
     Active Substance: HYDROXYCHLOROQUINE
     Dosage: STAT
  5. METHYLPREDNISOLONE [Concomitant]
     Active Substance: METHYLPREDNISOLONE
     Indication: Product used for unknown indication
  6. THIAMINE [Concomitant]
     Active Substance: THIAMINE
     Indication: Product used for unknown indication
  7. VITAMIN C [Concomitant]
     Active Substance: ASCORBIC ACID

REACTIONS (3)
  - Cardiac arrest [Fatal]
  - Respiratory arrest [Unknown]
  - Off label use [Unknown]
